FAERS Safety Report 5130432-8 (Version None)
Quarter: 2006Q4

REPORT INFORMATION
  Report Type: 
  Country: None (occurrence: None)
  Receive Date: 20061019
  Receipt Date: 20060927
  Transmission Date: 20070319
  Serious: Yes (Hospitalization, Other)
  Sender: FDA-Public Use
  Company Number: PHNR2006AU01325

PATIENT
  Sex: Female

DRUGS (6)
  1. FOSAMAX [Concomitant]
  2. HIPREX [Concomitant]
  3. DITROPAN [Concomitant]
  4. GLEEVEC [Suspect]
     Indication: CHRONIC MYELOID LEUKAEMIA
     Dosage: 400 MG, UNK
  5. GLEEVEC [Suspect]
     Dosage: 200 MG, QD
  6. GLEEVEC [Suspect]
     Dosage: 300 MG, UNK

REACTIONS (3)
  - CATHETER RELATED COMPLICATION [None]
  - HYPERREFLEXIA [None]
  - URINARY BLADDER HAEMORRHAGE [None]
